FAERS Safety Report 4359936-2 (Version None)
Quarter: 2004Q2

REPORT INFORMATION
  Report Type: 
  Country: None (occurrence: None)
  Receive Date: 20040518
  Receipt Date: 20031125
  Transmission Date: 20050107
  Serious: Yes (Hospitalization)
  Sender: FDA-Public Use
  Company Number: US-MERCK-0311USA02910M

PATIENT
  Age: 37 Year
  Sex: Female

DRUGS (6)
  1. ATAZANAVIR [Suspect]
     Indication: HIV INFECTION
     Route: 048
     Dates: start: 20031125
  2. CRIXIVAN [Suspect]
     Indication: HIV INFECTION
     Route: 048
     Dates: start: 20031029, end: 20031117
  3. COMBIVIR [Suspect]
     Indication: HIV INFECTION
     Route: 048
     Dates: start: 20031029, end: 20031117
  4. COMBIVIR [Suspect]
     Route: 048
     Dates: start: 20031125
  5. NORVIR [Suspect]
     Indication: HIV INFECTION
     Route: 048
     Dates: start: 20031029, end: 20031117
  6. NORVIR [Suspect]
     Route: 048
     Dates: start: 20031125

REACTIONS (4)
  - CYSTITIS HAEMORRHAGIC [None]
  - DRUG EXPOSURE DURING PREGNANCY [None]
  - NEPHROLITHIASIS [None]
  - ULTRASOUND KIDNEY ABNORMAL [None]
